FAERS Safety Report 4651526-7 (Version None)
Quarter: 2005Q2

REPORT INFORMATION
  Report Type: 
  Country: None (occurrence: None)
  Receive Date: 20050502
  Receipt Date: 20050419
  Transmission Date: 20051028
  Serious: Yes (Hospitalization, Other)
  Sender: FDA-Public Use
  Company Number: 2005061512

PATIENT
  Sex: Male
  Weight: 90.7194 kg

DRUGS (6)
  1. DILANTIN KAPSEAL [Suspect]
     Indication: CONVULSION
     Dosage: 500 MG (100 MG, 2 IN 1 D), ORAL
     Route: 048
     Dates: start: 19970101
  2. BENADRYL [Suspect]
     Indication: INFLUENZA
     Dosage: ONCE
     Dates: start: 20050301, end: 20050301
  3. BENADRYL [Suspect]
     Indication: NASOPHARYNGITIS
     Dosage: ONCE
     Dates: start: 20050301, end: 20050301
  4. OXCARBAZEPINE (OXCARBAZEPINE) [Suspect]
     Indication: CONVULSION
     Dosage: 1200 MG (600 MG, 2 IN 1 D)
     Dates: start: 20031201
  5. LORATADINE [Concomitant]
  6. GABAPENTIN [Concomitant]

REACTIONS (15)
  - ANTICONVULSANT DRUG LEVEL DECREASED [None]
  - ANTICONVULSANT TOXICITY [None]
  - ANXIETY [None]
  - BACK INJURY [None]
  - CONVULSION [None]
  - DISEASE RECURRENCE [None]
  - DRUG INEFFECTIVE [None]
  - INFLUENZA [None]
  - INSOMNIA [None]
  - NASOPHARYNGITIS [None]
  - PHARMACEUTICAL PRODUCT COMPLAINT [None]
  - PNEUMONIA ASPIRATION [None]
  - RESTLESSNESS [None]
  - SLEEP PHASE RHYTHM DISTURBANCE [None]
  - THERAPEUTIC RESPONSE UNEXPECTED [None]
